FAERS Safety Report 8166567-5 (Version None)
Quarter: 2012Q1

REPORT INFORMATION
  Report Type: 
  Country: None (occurrence: None)
  Receive Date: 20120227
  Receipt Date: 20111024
  Transmission Date: 20120608
  Serious: No
  Sender: FDA-Public Use
  Company Number: US-BRISTOL-MYERS SQUIBB COMPANY-16190019

PATIENT
  Age: 7 Decade
  Sex: Female
  Weight: 78 kg

DRUGS (2)
  1. METOPROLOL TARTRATE [Suspect]
     Indication: HYPERTENSION
  2. TAXOL [Suspect]
     Indication: FALLOPIAN TUBE CANCER
     Dosage: FOR 6-8WEEKS.

REACTIONS (4)
  - DRY SKIN [None]
  - HYPOAESTHESIA [None]
  - WEIGHT INCREASED [None]
  - PRURITUS [None]
